FAERS Safety Report 23623945 (Version 2)
Quarter: 2024Q3

REPORT INFORMATION
  Report Type: Report from Study
  Country: US (occurrence: US)
  Receive Date: 20240312
  Receipt Date: 20240705
  Transmission Date: 20241017
  Serious: Yes (Other)
  Sender: ABBVIE
  Company Number: US-ABBVIE-5670925

PATIENT
  Sex: Female

DRUGS (1)
  1. HUMIRA [Suspect]
     Active Substance: ADALIMUMAB
     Indication: Rheumatoid arthritis
     Route: 058
     Dates: start: 20231213

REACTIONS (19)
  - Meningioma [Unknown]
  - Rotator cuff syndrome [Unknown]
  - Umbilical hernia [Unknown]
  - Cataract [Unknown]
  - Anxiety [Unknown]
  - Fatigue [Unknown]
  - Skin abrasion [Unknown]
  - Animal scratch [Unknown]
  - Shoulder arthroplasty [Unknown]
  - Parotidectomy [Unknown]
  - Stress [Unknown]
  - Skin lesion [Unknown]
  - Musculoskeletal disorder [Unknown]
  - Neck pain [Unknown]
  - Unevaluable event [Unknown]
  - Wound haemorrhage [Unknown]
  - Skin infection [Unknown]
  - Scab [Unknown]
  - Wound infection [Unknown]
